FAERS Safety Report 20524407 (Version 10)
Quarter: 2022Q4

REPORT INFORMATION
  Report Type: Spontaneous
  Country: US (occurrence: US)
  Receive Date: 20220228
  Receipt Date: 20221129
  Transmission Date: 20230112
  Serious: No
  Sender: FDA-Public Use
  Company Number: US-SA-SAC20220222001236

PATIENT
  Age: 45 Year
  Sex: Female
  Weight: 98.4 kg

DRUGS (5)
  1. FABRAZYME [Suspect]
     Active Substance: AGALSIDASE BETA
     Indication: Fabry^s disease
     Dosage: 105 MG, QOW
     Route: 041
     Dates: start: 202111
  2. FABRAZYME [Suspect]
     Active Substance: AGALSIDASE BETA
     Dosage: 105 MG, QOW
     Route: 041
     Dates: start: 20211203
  3. FABRAZYME [Suspect]
     Active Substance: AGALSIDASE BETA
     Dosage: 150 MG
     Route: 041
     Dates: start: 202112
  4. BROMOCRIPTINE [Concomitant]
     Active Substance: BROMOCRIPTINE
     Indication: Pituitary tumour benign
     Dosage: 205 MG, QD
  5. DULOXETINE [Concomitant]
     Active Substance: DULOXETINE
     Indication: Depression
     Dosage: 20 MG, QD

REACTIONS (2)
  - Inappropriate schedule of product administration [Unknown]
  - Intentional dose omission [Unknown]

NARRATIVE: CASE EVENT DATE: 20220903
